FAERS Safety Report 14049676 (Version 1)
Quarter: 2017Q4

REPORT INFORMATION
  Report Type: Spontaneous
  Country: JP (occurrence: JP)
  Receive Date: 20171005
  Receipt Date: 20171005
  Transmission Date: 20180321
  Serious: Yes (Hospitalization)
  Sender: FDA-Public Use
  Company Number: JP-PFIZER INC-2017424133

PATIENT
  Age: 66 Year
  Sex: Male
  Weight: 50.5 kg

DRUGS (13)
  1. PRODIF [Concomitant]
     Active Substance: FOSFLUCONAZOLE
     Dosage: 400 MG, DAILY
     Route: 041
     Dates: start: 20170823, end: 20170914
  2. PRODIF [Concomitant]
     Active Substance: FOSFLUCONAZOLE
     Dosage: 100 MG, DAILY
     Route: 041
     Dates: start: 20170916
  3. ACICLOVIN [Concomitant]
     Active Substance: ACYCLOVIR
     Dosage: UNK
     Dates: start: 20170817, end: 20170828
  4. K-SUPPLY [Concomitant]
     Active Substance: POTASSIUM CHLORIDE
     Dosage: UNK
     Dates: start: 20170828, end: 20170916
  5. KCL CORRECTIVE [Concomitant]
     Dosage: UNK
     Dates: start: 20170831, end: 20170916
  6. AMBISOME [Suspect]
     Active Substance: AMPHOTERICIN B
     Indication: MENINGITIS CRYPTOCOCCAL
     Dosage: 200 MG, 1X/DAY (4MG/KG/DAY)
     Route: 041
     Dates: start: 20170823, end: 20170911
  7. VANCOMYCIN HCL [Suspect]
     Active Substance: VANCOMYCIN HYDROCHLORIDE
     Indication: BACTERAEMIA
     Dosage: 1 G, 2X/DAY
     Route: 041
     Dates: start: 20170910, end: 20170913
  8. MEROPEN [Suspect]
     Active Substance: MEROPENEM
     Indication: BACTERAEMIA
     Dosage: 1 G, 3X/DAY
     Route: 041
     Dates: start: 20170910, end: 20170913
  9. CEFTRIAXONE SODIUM. [Concomitant]
     Active Substance: CEFTRIAXONE SODIUM
     Dosage: UNK
     Dates: start: 20170817, end: 20170821
  10. PRODIF [Concomitant]
     Active Substance: FOSFLUCONAZOLE
     Dosage: 200 MG, DAILY
     Route: 041
     Dates: start: 20170915, end: 20170915
  11. AMBISOME [Suspect]
     Active Substance: AMPHOTERICIN B
     Dosage: 300 MG, 1X/DAY
     Route: 041
     Dates: start: 20170912, end: 20170915
  12. SOLU-MEDROL [Concomitant]
     Active Substance: METHYLPREDNISOLONE SODIUM SUCCINATE
     Dosage: UNK
     Dates: start: 20170914, end: 20170916
  13. KN NO.3 [Concomitant]
     Active Substance: DEXTROSE\POTASSIUM CHLORIDE\SODIUM CHLORIDE\SODIUM LACTATE
     Dosage: UNK
     Dates: start: 20170829

REACTIONS (2)
  - Renal impairment [Not Recovered/Not Resolved]
  - Hypokalaemia [Recovered/Resolved]

NARRATIVE: CASE EVENT DATE: 20170828
